FAERS Safety Report 7994282-7 (Version None)
Quarter: 2011Q4

REPORT INFORMATION
  Report Type: 
  Country: None (occurrence: None)
  Receive Date: 20111220
  Receipt Date: 20111216
  Transmission Date: 20120403
  Serious: Yes (Hospitalization, Other)
  Sender: FDA-Public Use
  Company Number: US-AMGEN-USASP2011060142

PATIENT
  Age: 85 Year
  Sex: Female

DRUGS (7)
  1. AMICAR [Concomitant]
  2. NPLATE [Suspect]
     Indication: IDIOPATHIC THROMBOCYTOPENIC PURPURA
     Dosage: UNK
     Dates: end: 20111109
  3. MYCELEX [Concomitant]
  4. ALLOPURINOL [Concomitant]
  5. AMIODARONE HCL [Concomitant]
     Indication: ATRIAL FIBRILLATION
  6. AMIODARONE HCL [Concomitant]
     Indication: ATRIAL FLUTTER
  7. ASPIRIN [Concomitant]

REACTIONS (20)
  - TONGUE COATED [None]
  - DERMATOMYOSITIS [None]
  - ECCHYMOSIS [None]
  - DERMATITIS [None]
  - ATRIAL FLUTTER [None]
  - CATARACT OPERATION [None]
  - CUSHINGOID [None]
  - CONSTIPATION [None]
  - EPISTAXIS [None]
  - HOSPITALISATION [None]
  - LARYNGITIS [None]
  - ANAEMIA [None]
  - THROMBOCYTOPENIA [None]
  - ORAL HERPES [None]
  - SKIN ULCER [None]
  - ACUTE MYELOID LEUKAEMIA [None]
  - BONE MARROW RETICULIN FIBROSIS [None]
  - BLOOD BLISTER [None]
  - OEDEMA PERIPHERAL [None]
  - FATIGUE [None]
